FAERS Safety Report 10400165 (Version 9)
Quarter: 2015Q2

REPORT INFORMATION
  Report Type: Spontaneous
  Country: US (occurrence: US)
  Receive Date: 20140821
  Receipt Date: 20150413
  Transmission Date: 20150821
  Serious: Yes (Death, Hospitalization, Other)
  Sender: FDA-Public Use
  Company Number: US-PFIZER INC-2014221532

PATIENT
  Age: 71 Year
  Sex: Female
  Weight: 32 kg

DRUGS (31)
  1. OXYCODONE [Concomitant]
     Active Substance: OXYCODONE
     Dosage: UNK, (10-325) MG, AS NEEDED
  2. MEGESTROL ACETATE. [Concomitant]
     Active Substance: MEGESTROL ACETATE
     Dosage: 100 MG, AS NEEDED
  3. SUTENT [Suspect]
     Active Substance: SUNITINIB MALATE
     Dosage: 25 MG, 1X/DAY
     Route: 048
  4. COUMADIN [Suspect]
     Active Substance: WARFARIN SODIUM
     Indication: ANTICOAGULANT THERAPY
     Dosage: UNK, (DOSAGE VARIED BETWEEN 3 AND 6 MG PER DAY)
     Dates: start: 201110, end: 20141003
  5. SUTENT [Suspect]
     Active Substance: SUNITINIB MALATE
     Dosage: UNK
     Route: 048
     Dates: end: 20141028
  6. HYDROCHLOROTHIAZIDE. [Concomitant]
     Active Substance: HYDROCHLOROTHIAZIDE
     Indication: BLOOD PRESSURE ABNORMAL
     Dosage: 25 MG, DAILY
     Route: 048
  7. ZOMETA [Concomitant]
     Active Substance: ZOLEDRONIC ACID
     Dosage: UNK
  8. FUROSEMIDE. [Concomitant]
     Active Substance: FUROSEMIDE
     Dosage: 40 MG, 1X/DAY
  9. SUTENT [Suspect]
     Active Substance: SUNITINIB MALATE
     Dosage: 25 MG, DAILY, CONTINUOSLY
     Dates: start: 20140911
  10. SUTENT [Suspect]
     Active Substance: SUNITINIB MALATE
     Dosage: UNK
     Route: 048
     Dates: start: 2014
  11. COUMADIN [Suspect]
     Active Substance: WARFARIN SODIUM
     Dosage: 4-7 MG/DAY
  12. NEURONTIN [Concomitant]
     Active Substance: GABAPENTIN
     Indication: NEURALGIA
     Dosage: UNK
  13. KADIAN [Concomitant]
     Active Substance: MORPHINE SULFATE
     Dosage: 30 MG BY MOUTH DAILY TAKE 1 TABE THREE TIMES DAILY)
  14. SUTENT [Suspect]
     Active Substance: SUNITINIB MALATE
     Dosage: 37.5 MG, DAILY
     Route: 048
     Dates: start: 20140901
  15. OXYCODONE [Concomitant]
     Active Substance: OXYCODONE
     Dosage: 5 MG, AS AS NEEDED (EVERY 4 HOURS)
  16. AMBIEN [Concomitant]
     Active Substance: ZOLPIDEM TARTRATE
     Dosage: 5 MG, 1X/DAY (NIGHTLY)
     Route: 048
     Dates: start: 20121010
  17. ONDASETRON [Concomitant]
     Active Substance: ONDANSETRON
     Dosage: UNK, AS NEEDED
  18. SUTENT [Suspect]
     Active Substance: SUNITINIB MALATE
     Dosage: 37.5 MG, DAILY
     Route: 048
     Dates: start: 20140820
  19. SUTENT [Suspect]
     Active Substance: SUNITINIB MALATE
     Dosage: 25 MG, DAILY
     Dates: start: 20141013, end: 20141103
  20. MORPHINE [Concomitant]
     Active Substance: MORPHINE
     Dosage: 30 MG, 3X/DAY (7:00AM; 3:00PM; 11:00 PM)
     Route: 048
  21. K-DUR [Concomitant]
     Active Substance: POTASSIUM CHLORIDE
     Dosage: 10 MEQ, DAILY (TAKE 10 MEQ BY MOUTH DAILY)
     Route: 048
     Dates: start: 20140611
  22. HYDRODIURIL [Concomitant]
     Active Substance: HYDROCHLOROTHIAZIDE
     Dosage: 25 MG, DAILY (TAKE 25 MG BY MOUTH DAILY -ORAL)
     Route: 048
  23. SUTENT [Suspect]
     Active Substance: SUNITINIB MALATE
     Indication: MALIGNANT HAEMANGIOPERICYTOMA METASTATIC
     Dosage: 37.5 MG, DAILY
     Route: 048
     Dates: start: 20140806, end: 20140903
  24. SUTENT [Suspect]
     Active Substance: SUNITINIB MALATE
     Dosage: 25 MG, DAILY
     Route: 048
     Dates: start: 2014
  25. SUTENT [Suspect]
     Active Substance: SUNITINIB MALATE
     Dosage: 25 MG, DAILY
     Route: 048
     Dates: start: 20140913, end: 20141003
  26. PERCOCET [Concomitant]
     Active Substance: ACETAMINOPHEN\OXYCODONE HYDROCHLORIDE
     Dosage: 1 DF, AS NEEDED (OXYCODONE 10MG; ACETAMINOPHEN 325MG) [TAKE 1 TABLET  EVERY 4 (FOUR) HOURS]
     Route: 048
  27. GABAPENTIN. [Concomitant]
     Active Substance: GABAPENTIN
     Indication: NEURALGIA
     Dosage: 100 MG, 1X/DAY
     Dates: end: 20140908
  28. VITAMIN B COMPLEX [Concomitant]
     Active Substance: CYANOCOBALAMIN\DEXPANTHENOL\NIACINAMIDE\PYRIDOXINE HYDROCHLORIDE\RIBOFLAVIN 5^-PHOSPHATE SODIUM\THIAMINE HYDROCHLORIDE\VITAMIN B COMPLEX
     Dosage: 1 DF, DAILY (TAKE 1 TABLET BY MOUTH DAILY)
     Route: 048
  29. CORAL CALCIUM [Concomitant]
     Dosage: 2 DF, 2X/DAY (2 TABLETS BY DOES NOT APPLY ROUTE 2 (TWO) TIMES DAILY)
  30. ROXICODONE [Concomitant]
     Active Substance: OXYCODONE HYDROCHLORIDE
     Dosage: 5 MG, AS NEEDED (TAKE AS NEEDED)
     Dates: start: 20140805
  31. OMEPRAZOLE. [Concomitant]
     Active Substance: OMEPRAZOLE
     Dosage: 20 MG, 2X/DAY (7:00AM; 11:00 PM)

REACTIONS (42)
  - Gastric haemorrhage [Unknown]
  - Cardiac failure congestive [Unknown]
  - Asthenia [Unknown]
  - Mucosal inflammation [Unknown]
  - Hypertension [Unknown]
  - Hypocalcaemia [Unknown]
  - Abdominal pain [Unknown]
  - Product use issue [Unknown]
  - Disease progression [Fatal]
  - Embolism [Unknown]
  - Confusional state [Recovering/Resolving]
  - Decreased appetite [Recovered/Resolved]
  - Stomatitis [Recovered/Resolved]
  - Periorbital contusion [Unknown]
  - Somnolence [Not Recovered/Not Resolved]
  - Constipation [Unknown]
  - Palmar-plantar erythrodysaesthesia syndrome [Unknown]
  - Epistaxis [Unknown]
  - Oedema [Unknown]
  - Pulmonary embolism [Unknown]
  - Headache [Unknown]
  - Hyperglycaemia [Unknown]
  - Liver function test abnormal [Unknown]
  - Malignant haemangiopericytoma metastatic [Fatal]
  - Pancytopenia [Unknown]
  - Nausea [Recovered/Resolved]
  - Fatigue [Unknown]
  - Sleep disorder [Recovering/Resolving]
  - Dyspnoea [Unknown]
  - Depressed level of consciousness [Unknown]
  - Skin discolouration [Unknown]
  - Diarrhoea [Unknown]
  - Hair colour changes [Unknown]
  - Ulcer haemorrhage [Not Recovered/Not Resolved]
  - Blood count abnormal [Unknown]
  - Cough [Unknown]
  - Influenza like illness [Unknown]
  - Bone pain [Unknown]
  - Depression [Unknown]
  - Anxiety [Unknown]
  - Pruritus [Unknown]
  - Disorientation [Recovering/Resolving]

NARRATIVE: CASE EVENT DATE: 2014
